FAERS Safety Report 10509598 (Version 2)
Quarter: 2014Q4

REPORT INFORMATION
  Report Type: Spontaneous
  Country: CN (occurrence: CN)
  Receive Date: 20141010
  Receipt Date: 20141117
  Transmission Date: 20150528
  Serious: Yes (Hospitalization)
  Sender: FDA-Public Use
  Company Number: CN-ORION CORPORATION ORION PHARMA-ENT 2014-0166

PATIENT
  Age: 67 Year
  Sex: Female

DRUGS (13)
  1. SULPIRIDE [Suspect]
     Active Substance: SULPIRIDE
     Route: 042
  2. LEVODOPA+BENSERAZIDE (NGX) [Suspect]
     Active Substance: BENSERAZIDE\LEVODOPA
     Indication: PARKINSONISM
     Route: 065
  3. ENTACAPONE. [Suspect]
     Active Substance: ENTACAPONE
     Route: 065
  4. LEVODOPA+BENSERAZIDE (NGX) [Suspect]
     Active Substance: BENSERAZIDE\LEVODOPA
     Route: 065
  5. AMANTADINE [Concomitant]
     Active Substance: AMANTADINE
     Route: 065
     Dates: start: 2011
  6. LEVODOPA+BENSERAZIDE (NGX) [Suspect]
     Active Substance: BENSERAZIDE\LEVODOPA
     Route: 065
  7. SULPIRIDE [Suspect]
     Active Substance: SULPIRIDE
     Indication: PARKINSONISM
     Route: 042
  8. PIRIBEDIL [Suspect]
     Active Substance: PIRIBEDIL
     Indication: PARKINSONISM
     Route: 065
  9. LEVODOPA+BENSERAZIDE (NGX) [Suspect]
     Active Substance: BENSERAZIDE\LEVODOPA
     Route: 065
  10. LEVODOPA+BENSERAZIDE (NGX) [Suspect]
     Active Substance: BENSERAZIDE\LEVODOPA
     Route: 065
  11. ENTACAPONE. [Suspect]
     Active Substance: ENTACAPONE
     Indication: PARKINSONISM
     Route: 065
  12. LEVODOPA+BENSERAZIDE (NGX) [Suspect]
     Active Substance: BENSERAZIDE\LEVODOPA
     Dosage: 1/8 TABLET
     Route: 065
  13. PIRIBEDIL [Suspect]
     Active Substance: PIRIBEDIL
     Route: 065

REACTIONS (4)
  - Parkinsonism [Recovering/Resolving]
  - Drug ineffective [Unknown]
  - Hallucination [Recovering/Resolving]
  - Activities of daily living impaired [Recovering/Resolving]

NARRATIVE: CASE EVENT DATE: 2013
